FAERS Safety Report 24019257 (Version 1)
Quarter: 2024Q2

REPORT INFORMATION
  Report Type: Spontaneous
  Country: US (occurrence: US)
  Receive Date: 20240627
  Receipt Date: 20240627
  Transmission Date: 20240715
  Serious: Yes (Hospitalization, Other)
  Sender: FDA-Public Use
  Company Number: US-BAYER-2024A089482

PATIENT
  Age: 31 Year
  Sex: Female

DRUGS (1)
  1. SKYLA [Suspect]
     Active Substance: LEVONORGESTREL
     Indication: Contraception
     Dosage: 14?G/DAY
     Route: 015
     Dates: start: 20220321

REACTIONS (6)
  - Ectopic pregnancy with contraceptive device [Recovering/Resolving]
  - Ruptured ectopic pregnancy [None]
  - Drug ineffective [None]
  - Menstrual disorder [Recovered/Resolved]
  - Abdominal pain lower [None]
  - Amenorrhoea [Recovered/Resolved]

NARRATIVE: CASE EVENT DATE: 20220301
